FAERS Safety Report 9343888 (Version 1)
Quarter: 2013Q2

REPORT INFORMATION
  Report Type: Spontaneous
  Country: DE (occurrence: None)
  Receive Date: 20130610
  Receipt Date: 20130610
  Transmission Date: 20140414
  Serious: Yes (Congenital Anomaly, Other)
  Sender: FDA-Public Use
  Company Number: E2B_00000907

PATIENT
  Sex: Male
  Weight: 4.87 kg

DRUGS (7)
  1. LAMOTRIGINE [Suspect]
     Indication: EPILEPSY
     Dosage: 300 MG (100 MG, 3 IN 1 D), TRANSPLACENTAL
     Route: 064
     Dates: start: 20110806, end: 20120511
  2. KEPPRA (LEVETIRACETAM) [Suspect]
     Indication: EPILEPSY
     Dosage: 2000 MG (1000 MG, 2 IN 1 D), TRANSPLACENTAL
     Route: 064
     Dates: start: 20110806, end: 20120511
  3. SEROQUEL (QUETIAPINE FUMARATE) [Suspect]
     Indication: BORDERLINE PERSONALITY DISORDER
     Dosage: 50 MG (25 MG, 2 IN 1 D), TRANSPLACENTAL
     Route: 064
     Dates: start: 20110806, end: 20120511
  4. RIVOTRIL (CLONAZEPAM) [Suspect]
     Indication: BORDERLINE PERSONALITY DISORDER
     Route: 064
     Dates: start: 20110806, end: 20120315
  5. LEVOTHYROXINE SODIUM (EUTHYROX) (UNKNOWN) [Concomitant]
  6. TRIMIPRAMINE MALEATE (STANGYL) (UNKNOWN) (TRIMIPRAMINE MELEATE) [Concomitant]
  7. DIAMORPHINE (HEROIN) (UNKNOWN) [Concomitant]

REACTIONS (10)
  - Maternal drugs affecting foetus [None]
  - Neonatal respiratory distress syndrome [None]
  - Drug withdrawal syndrome neonatal [None]
  - Convulsion [None]
  - Dysmorphism [None]
  - Retrognathia [None]
  - Oxygen saturation decreased [None]
  - Dyskinesia [None]
  - Hypertonia neonatal [None]
  - Agitation neonatal [None]
